FAERS Safety Report 20429576 (Version 1)
Quarter: 2022Q1

REPORT INFORMATION
  Report Type: Report from Study
  Country: FR (occurrence: FR)
  Receive Date: 20220204
  Receipt Date: 20220204
  Transmission Date: 20220423
  Serious: Yes (Hospitalization, Other)
  Sender: FDA-Public Use
  Company Number: FR-SERVIER-S19006311

PATIENT

DRUGS (8)
  1. ONCASPAR [Suspect]
     Active Substance: PEGASPARGASE
     Indication: Acute lymphocytic leukaemia
     Dosage: 1650 IU, QD, D4
     Route: 042
     Dates: start: 20181101
  2. DEXAMETHASONE [Suspect]
     Active Substance: DEXAMETHASONE
     Indication: Acute lymphocytic leukaemia
     Dosage: 6.6 MG, FROM D1 TO D15
     Route: 048
     Dates: start: 20181020, end: 20181112
  3. VINCRISTINE [Suspect]
     Active Substance: VINCRISTINE
     Indication: Acute lymphocytic leukaemia
     Dosage: 0.9 MG, ON D1, D8, D15
     Route: 042
     Dates: start: 20181029, end: 20181112
  4. DOXORUBICIN [Suspect]
     Active Substance: DOXORUBICIN
     Indication: Acute lymphocytic leukaemia
     Dosage: 16.4 MG, ON D1, D8, D15
     Route: 042
     Dates: start: 20181029, end: 20181112
  5. THIOGUANINE [Suspect]
     Active Substance: THIOGUANINE
     Indication: Acute lymphocytic leukaemia
     Dosage: 40 MG, FROM D29 TO D42
     Route: 048
     Dates: start: 20181203, end: 20181216
  6. CYTARABINE [Suspect]
     Active Substance: CYTARABINE
     Indication: Acute lymphocytic leukaemia
     Dosage: 49 MG, FROM D31 TO D34 AND FROM D38 TO D42
     Route: 042
     Dates: start: 20181205, end: 20181216
  7. CYCLOPHOSPHAMIDE [Suspect]
     Active Substance: CYCLOPHOSPHAMIDE
     Indication: Acute lymphocytic leukaemia
     Dosage: 660 MG, ON D29
     Route: 042
     Dates: start: 20181203, end: 20181203
  8. METHOTREXATE [Suspect]
     Active Substance: METHOTREXATE
     Indication: Acute lymphocytic leukaemia
     Dosage: 12 MG, ON D4, D31
     Route: 037
     Dates: start: 20181101, end: 20181205

REACTIONS (6)
  - Hyperbilirubinaemia [Recovering/Resolving]
  - Hepatitis cholestatic [Recovered/Resolved]
  - Febrile bone marrow aplasia [Recovered/Resolved]
  - Mucosal inflammation [Recovered/Resolved]
  - Septic shock [Recovered/Resolved]
  - Hypertriglyceridaemia [Recovered/Resolved]

NARRATIVE: CASE EVENT DATE: 20181108
